FAERS Safety Report 8906822 (Version 10)
Quarter: 2013Q4

REPORT INFORMATION
  Report Type: Report from Study
  Country: CZ (occurrence: CZ)
  Receive Date: 20121114
  Receipt Date: 20131021
  Transmission Date: 20140711
  Serious: Yes (Death, Life-Threatening, Hospitalization)
  Sender: FDA-Public Use
  Company Number: CZ-JNJFOC-20121017006

PATIENT
  Age: 47 Year
  Sex: Male
  Weight: 88 kg

DRUGS (10)
  1. ABIRATERONE ACETATE [Suspect]
     Route: 048
  2. ABIRATERONE ACETATE [Suspect]
     Indication: PROSTATE CANCER METASTATIC
     Route: 048
     Dates: start: 20121002, end: 20121023
  3. PREDNISONE [Suspect]
     Indication: PROSTATE CANCER METASTATIC
     Route: 048
     Dates: start: 20121002
  4. OMEPRAZOLE [Concomitant]
  5. CITALOPRAM [Concomitant]
  6. XYZAL [Concomitant]
  7. MATRIFEN [Concomitant]
  8. LEXAURIN [Concomitant]
  9. CALCIUM [Concomitant]
  10. IRON SULPHATE [Concomitant]

REACTIONS (1)
  - Hepatorenal failure [Fatal]
